FAERS Safety Report 20138465 (Version 1)
Quarter: 2021Q4

REPORT INFORMATION
  Report Type: Other
  Country: CA (occurrence: CA)
  Receive Date: 20211202
  Receipt Date: 20211202
  Transmission Date: 20220303
  Serious: Yes (Hospitalization, Other)
  Sender: FDA-Public Use
  Company Number: CA-APOTEX-2021AP045972

PATIENT
  Age: 15 Year
  Sex: Female
  Weight: 33 kg

DRUGS (7)
  1. OLANZAPINE [Suspect]
     Active Substance: OLANZAPINE
     Indication: Psychotic disorder
     Dosage: 5 MILLIGRAM, QD
     Route: 048
  2. OLANZAPINE [Suspect]
     Active Substance: OLANZAPINE
     Indication: Confusional state
     Dosage: 1.25 MILLIGRAM, PRN
     Route: 048
  3. OLANZAPINE [Suspect]
     Active Substance: OLANZAPINE
     Indication: Agitation
     Dosage: 2.5 MILLIGRAM, QD
     Route: 048
  4. FOLIC ACID [Concomitant]
     Active Substance: FOLIC ACID
     Indication: Product used for unknown indication
     Dosage: UNK
     Route: 065
  5. SODIUM [Concomitant]
     Active Substance: SODIUM
     Indication: Product used for unknown indication
     Dosage: UNK
     Route: 065
  6. SODIUM PHOSPHATE [Concomitant]
     Active Substance: SODIUM PHOSPHATE
     Indication: Product used for unknown indication
     Dosage: UNK
     Route: 065
  7. THIAMINE [Concomitant]
     Active Substance: THIAMINE
     Indication: Product used for unknown indication
     Dosage: UNK
     Route: 065

REACTIONS (8)
  - General physical health deterioration [Unknown]
  - Delirium [Unknown]
  - Musculoskeletal stiffness [Unknown]
  - Neuroleptic malignant syndrome [Unknown]
  - Blood creatine phosphokinase increased [Unknown]
  - Pyrexia [Unknown]
  - Tachycardia [Unknown]
  - Therapeutic product effect incomplete [Unknown]
